FAERS Safety Report 4307470-8 (Version None)
Quarter: 2004Q1

REPORT INFORMATION
  Report Type: 
  Country: None (occurrence: None)
  Receive Date: 20040226
  Receipt Date: 20040219
  Transmission Date: 20041129
  Serious: Yes (Other)
  Sender: FDA-Public Use
  Company Number: BE-JNJFOC-20030802650

PATIENT
  Age: 52 Year
  Sex: Female

DRUGS (6)
  1. REMICADE [Suspect]
     Indication: RHEUMATOID ARTHRITIS
     Dosage: 150 MG, 1 IN 8 WEEK, INTRAVENOUS
     Route: 042
     Dates: end: 20030702
  2. METHOTREXATE [Concomitant]
  3. MEDROL [Concomitant]
  4. RANITIDINE [Concomitant]
  5. FOLIC ACID [Concomitant]
  6. ZOLPIDEM TARTRATE [Concomitant]

REACTIONS (2)
  - BIOPSY BREAST ABNORMAL [None]
  - LYMPHADENOPATHY [None]
